FAERS Safety Report 6173593-4 (Version None)
Quarter: 2009Q2

REPORT INFORMATION
  Report Type: 
  Country: None (occurrence: None)
  Receive Date: 20090429
  Receipt Date: 20090429
  Transmission Date: 20091009
  Serious: No
  Sender: FDA-Public Use
  Company Number: None

PATIENT
  Age: 87 Year
  Sex: Male
  Weight: 64.4108 kg

DRUGS (1)
  1. DIGOXIN [Suspect]
     Indication: ARRHYTHMIA
     Dosage: 125MCG 1 A DAY
     Dates: start: 20060301, end: 20090301

REACTIONS (3)
  - BLOOD TEST ABNORMAL [None]
  - RENAL DISORDER [None]
  - URINE ABNORMALITY [None]
